FAERS Safety Report 20604872 (Version 2)
Quarter: 2022Q2

REPORT INFORMATION
  Report Type: Spontaneous
  Country: CA (occurrence: None)
  Receive Date: 20220317
  Receipt Date: 20220427
  Transmission Date: 20220720
  Serious: Yes (Disabling)
  Sender: FDA-Public Use
  Company Number: 2022A108709

PATIENT
  Age: 77 Year
  Sex: Female

DRUGS (1)
  1. DAPAGLIFLOZIN [Suspect]
     Active Substance: DAPAGLIFLOZIN
     Indication: Type 2 diabetes mellitus
     Route: 048

REACTIONS (3)
  - Abdominal pain upper [Unknown]
  - Dizziness [Unknown]
  - Vomiting [Unknown]
